FAERS Safety Report 6828802-2 (Version None)
Quarter: 2010Q3

REPORT INFORMATION
  Report Type: 
  Country: None (occurrence: None)
  Receive Date: 20100709
  Receipt Date: 20071205
  Transmission Date: 20110219
  Serious: No
  Sender: FDA-Public Use
  Company Number: US-PFIZER INC-2007014452

PATIENT
  Sex: Female
  Weight: 74.84 kg

DRUGS (3)
  1. CHANTIX [Suspect]
     Indication: SMOKING CESSATION THERAPY
     Dates: start: 20070201, end: 20070201
  2. IMDUR [Concomitant]
     Indication: HYPERTENSION
  3. HYZAAR [Concomitant]
     Indication: HYPERTENSION

REACTIONS (3)
  - NAUSEA [None]
  - PAIN [None]
  - VOMITING [None]
